FAERS Safety Report 8195541-8 (Version None)
Quarter: 2012Q1

REPORT INFORMATION
  Report Type: 
  Country: None (occurrence: None)
  Receive Date: 20120308
  Receipt Date: 20120306
  Transmission Date: 20120608
  Serious: Yes (Death)
  Sender: FDA-Public Use
  Company Number: PHHY2012HU017690

PATIENT
  Sex: Male

DRUGS (4)
  1. SANDOSTATIN LAR [Suspect]
     Dosage: 20 MG, UNK
     Dates: start: 20100301
  2. SANDOSTATIN LAR [Suspect]
     Dosage: 10 MG, UNK
     Dates: start: 20091215
  3. SANDOSTATIN LAR [Suspect]
     Dosage: 20 MG, UNK
     Dates: start: 20100110
  4. SANDOSTATIN LAR [Suspect]
     Dosage: 30 MG, UNK
     Dates: start: 20100210

REACTIONS (2)
  - NEOPLASM MALIGNANT [None]
  - CARDIOPULMONARY FAILURE [None]
